FAERS Safety Report 24030503 (Version 2)
Quarter: 2024Q3

REPORT INFORMATION
  Report Type: Spontaneous
  Country: US (occurrence: US)
  Receive Date: 20240628
  Receipt Date: 20240711
  Transmission Date: 20241017
  Serious: No
  Sender: PURDUE
  Company Number: US-PURDUE PHARMA-USA-2024-0310455

PATIENT
  Sex: Male

DRUGS (1)
  1. BUTRANS [Suspect]
     Active Substance: BUPRENORPHINE
     Indication: Pain
     Dosage: 7.5 MILLIGRAM, UNK
     Route: 062
     Dates: start: 202402

REACTIONS (4)
  - Application site erythema [Unknown]
  - Application site pruritus [Unknown]
  - Application site irritation [Unknown]
  - Application site reaction [Unknown]

NARRATIVE: CASE EVENT DATE: 20240618
